FAERS Safety Report 7337334-7 (Version None)
Quarter: 2011Q1

REPORT INFORMATION
  Report Type: 
  Country: None (occurrence: None)
  Receive Date: 20110308
  Receipt Date: 20091109
  Transmission Date: 20110831
  Serious: No
  Sender: FDA-Public Use
  Company Number: 2009BI036457

PATIENT
  Sex: Male

DRUGS (1)
  1. TYSABRI [Suspect]
     Indication: MULTIPLE SCLEROSIS
     Route: 042
     Dates: start: 20090824

REACTIONS (5)
  - GAIT DISTURBANCE [None]
  - HEADACHE [None]
  - NERVOUSNESS [None]
  - FATIGUE [None]
  - DRUG INEFFECTIVE [None]
